FAERS Safety Report 8614710 (Version 7)
Quarter: 2013Q3

REPORT INFORMATION
  Report Type: Spontaneous
  Country: CO (occurrence: CO)
  Receive Date: 20120614
  Receipt Date: 20130808
  Transmission Date: 20140515
  Serious: Yes (Other)
  Sender: FDA-Public Use
  Company Number: CO-BIOMARINP-002610

PATIENT
  Sex: Male

DRUGS (1)
  1. NAGLAZYME [Suspect]
     Indication: MUCOPOLYSACCHARIDOSIS VI
     Dosage: 15MG,QW
     Route: 041
     Dates: start: 20081107

REACTIONS (4)
  - Hepatomegaly [Not Recovered/Not Resolved]
  - Jaundice [Recovered/Resolved]
  - Deficiency of bile secretion [Recovered/Resolved]
  - Skin exfoliation [Recovered/Resolved]
